FAERS Safety Report 9117200 (Version 3)
Quarter: 2014Q2

REPORT INFORMATION
  Report Type: Spontaneous
  Country: CA (occurrence: CA)
  Receive Date: 20130128
  Receipt Date: 20140610
  Transmission Date: 20141212
  Serious: Yes (Hospitalization)
  Sender: FDA-Public Use
  Company Number: CA-ROCHE-1184346

PATIENT
  Age: 48 Year
  Sex: Male

DRUGS (3)
  1. XOLAIR [Suspect]
     Indication: ASTHMA
     Route: 058
     Dates: start: 20070731
  2. XOLAIR [Suspect]
     Route: 058
     Dates: start: 20090414
  3. XOLAIR [Suspect]
     Route: 065
     Dates: start: 20131024

REACTIONS (10)
  - Influenza [Unknown]
  - Acne [Unknown]
  - Nasopharyngitis [Unknown]
  - Dyspnoea [Unknown]
  - Weight increased [Unknown]
  - Cough [Unknown]
  - Blood pressure increased [Unknown]
  - Hypotension [Unknown]
  - Fatigue [Unknown]
  - Dizziness [Unknown]
